FAERS Safety Report 12358758 (Version 1)
Quarter: 2016Q2

REPORT INFORMATION
  Report Type: Spontaneous
  Country: US (occurrence: None)
  Receive Date: 20160511
  Receipt Date: 20160511
  Transmission Date: 20160815
  Serious: Yes (Other)
  Sender: FDA-Public Use
  Company Number: None

PATIENT
  Age: 44 Year
  Sex: Female
  Weight: 89.81 kg

DRUGS (5)
  1. SERQUELL [Concomitant]
  2. LAMINAL [Concomitant]
  3. CYMBALTA [Suspect]
     Active Substance: DULOXETINE HYDROCHLORIDE
     Indication: DEPRESSION
     Dosage: 30 CAPSULE(S) IN THE MORNING TAKEN BY MOUTH
     Route: 048
     Dates: start: 20130725, end: 20160501
  4. KLOPLIAN [Concomitant]
  5. WELLBRUTIN XL [Concomitant]

REACTIONS (1)
  - Helicobacter infection [None]

NARRATIVE: CASE EVENT DATE: 20160428
